FAERS Safety Report 21491137 (Version 2)
Quarter: 2022Q4

REPORT INFORMATION
  Report Type: Spontaneous
  Country: JP (occurrence: JP)
  Receive Date: 20221021
  Receipt Date: 20221028
  Transmission Date: 20230112
  Serious: Yes (Hospitalization, Other)
  Sender: FDA-Public Use
  Company Number: JP-SA-2022SA428996

PATIENT
  Age: 55 Year
  Sex: Male
  Weight: 52.2 kg

DRUGS (3)
  1. CLOPIDOGREL BISULFATE [Suspect]
     Active Substance: CLOPIDOGREL BISULFATE
     Indication: Cerebral infarction
     Dosage: 75 MG, QD
     Route: 048
     Dates: start: 20220908, end: 20220909
  2. OZAGREL NA [Concomitant]
     Dosage: UNK
     Route: 041
     Dates: start: 20220831, end: 20220909
  3. EDARAVONE [Concomitant]
     Active Substance: EDARAVONE
     Dosage: UNK
     Route: 041
     Dates: start: 20220831, end: 20220909

REACTIONS (1)
  - Hepatic function abnormal [Recovering/Resolving]

NARRATIVE: CASE EVENT DATE: 20220909
